FAERS Safety Report 9735594 (Version 1)
Quarter: 2013Q4

REPORT INFORMATION
  Report Type: Spontaneous
  Country: US (occurrence: US)
  Receive Date: 20131206
  Receipt Date: 20131206
  Transmission Date: 20140711
  Serious: Yes (Hospitalization)
  Sender: FDA-Public Use
  Company Number: US-MYLANLABS-2013S1026807

PATIENT
  Age: 56 Year
  Sex: Male

DRUGS (1)
  1. MORPHINE [Suspect]
     Dosage: HEAVY-DOSE
     Route: 065

REACTIONS (1)
  - Pancreatitis acute [Recovered/Resolved]
